FAERS Safety Report 23389131 (Version 4)
Quarter: 2025Q1

REPORT INFORMATION
  Report Type: Spontaneous
  Country: US (occurrence: US)
  Receive Date: 20240110
  Receipt Date: 20250326
  Transmission Date: 20250408
  Serious: Yes (Other)
  Sender: PFIZER
  Company Number: US-PFIZER INC-202200721413

PATIENT
  Age: 66 Year
  Sex: Female
  Weight: 96.16 kg

DRUGS (13)
  1. VYNDAMAX [Suspect]
     Active Substance: TAFAMIDIS
     Indication: Familial amyloidosis
     Dosage: 61MG CAPSULE, ONE CAPSULE A DAY
     Route: 048
     Dates: start: 202211
  2. VYNDAMAX [Suspect]
     Active Substance: TAFAMIDIS
     Indication: Cardiomyopathy
  3. VYNDAMAX [Suspect]
     Active Substance: TAFAMIDIS
     Indication: Amyloidosis
  4. VYNDAMAX [Suspect]
     Active Substance: TAFAMIDIS
     Indication: Cardiac failure congestive
  5. METOPROLOL SUCCINATE [Concomitant]
     Active Substance: METOPROLOL SUCCINATE
     Indication: Hypertension
     Dosage: 25MG PER TABLET, ONE TABLET ONCE A DAY
     Route: 048
  6. ENTRESTO [Concomitant]
     Active Substance: SACUBITRIL\VALSARTAN
     Indication: Cardiac failure congestive
     Dosage: 24-26MG PER TABLET, ONE TABLET TWICE A DAY
     Route: 048
     Dates: start: 2022
  7. LYRICA [Concomitant]
     Active Substance: PREGABALIN
     Indication: Neuropathy peripheral
     Dosage: 150MG PER CAPSULE, ONE CAPSULE TWICE A DAY
     Route: 048
     Dates: start: 2017
  8. DULOXETINE [Concomitant]
     Active Substance: DULOXETINE
     Indication: Gastrointestinal disorder
     Dosage: 20MG PER CAPSULE, ONE CAPSULE ONCE A DAY
     Route: 048
  9. PANTOPRAZOLE SODIUM [Concomitant]
     Active Substance: PANTOPRAZOLE SODIUM
     Indication: Gastrooesophageal reflux disease
     Dosage: 40MG TABLET, ONE TABLET ONCE A DAY
     Route: 048
  10. FUROSEMIDE [Concomitant]
     Active Substance: FUROSEMIDE
     Indication: Cardiac failure congestive
     Dosage: 40MG TABLET, ONE TABLET ONCE A DAY
     Route: 048
     Dates: start: 2022
  11. FUROSEMIDE [Concomitant]
     Active Substance: FUROSEMIDE
     Indication: Fluid retention
  12. SPIRONOLACTONE [Concomitant]
     Active Substance: SPIRONOLACTONE
     Indication: Cardiac failure congestive
     Dosage: HALF OF A 25MG TABLET, ONCE DAILY, BY MOUTH
     Route: 048
     Dates: start: 2022
  13. SPIRONOLACTONE [Concomitant]
     Active Substance: SPIRONOLACTONE
     Indication: Fluid retention

REACTIONS (5)
  - Influenza [Recovering/Resolving]
  - Bronchitis [Recovering/Resolving]
  - Migraine [Unknown]
  - Headache [Unknown]
  - Nausea [Unknown]

NARRATIVE: CASE EVENT DATE: 20231219
